FAERS Safety Report 7889232-8 (Version None)
Quarter: 2011Q4

REPORT INFORMATION
  Report Type: 
  Country: None (occurrence: None)
  Receive Date: 20111101
  Receipt Date: 20111018
  Transmission Date: 20120403
  Serious: Yes (Other)
  Sender: FDA-Public Use
  Company Number: TPA2011A06827

PATIENT
  Age: 62 Year
  Sex: Male
  Weight: 88.4514 kg

DRUGS (2)
  1. ACTOS [Suspect]
     Dosage: 45 MG
     Dates: start: 20020101, end: 20040101
  2. BYETTA [Concomitant]

REACTIONS (2)
  - FEELING ABNORMAL [None]
  - BLADDER CANCER [None]
